FAERS Safety Report 17289744 (Version 3)
Quarter: 2020Q2

REPORT INFORMATION
  Report Type: Report from Study
  Country: US (occurrence: US)
  Receive Date: 20200120
  Receipt Date: 20200604
  Transmission Date: 20200713
  Serious: Yes (Hospitalization)
  Sender: FDA-Public Use
  Company Number: US-AMGEN-USACT2019172061

PATIENT
  Age: 69 Year
  Sex: Female
  Weight: 58.1 kg

DRUGS (35)
  1. OXYCODONE [Concomitant]
     Active Substance: OXYCODONE
     Indication: PAIN
     Dosage: 5 MILLIGRAM, Q6H
     Dates: start: 20161214
  2. XARELTO [Concomitant]
     Active Substance: RIVAROXABAN
     Dosage: 10 MILLIGRAM, QD
     Dates: start: 20180326
  3. HUMULIN R [Concomitant]
     Active Substance: INSULIN HUMAN
     Dosage: 10 UNK
     Dates: start: 20150903
  4. LACTULOSE. [Concomitant]
     Active Substance: LACTULOSE
     Indication: CONSTIPATION
     Dosage: 2 UNK AS NEEDED (PRN)
     Dates: start: 20170724
  5. MEGACE [Concomitant]
     Active Substance: MEGESTROL ACETATE
     Dosage: 400 MILLIGRAM/5-10 MILLILITER OR 200 MILLIGRAM (TWICE DAILY)
  6. POLYETHYLENE GLYCOL [Concomitant]
     Active Substance: POLYETHYLENE GLYCOLS
     Indication: CONSTIPATION
     Dosage: 17 GRAM, QD AS NEEDED (PRN)
  7. OMEPRAZOLE. [Concomitant]
     Active Substance: OMEPRAZOLE
     Dosage: 40 MILLIGRAM, QD
     Dates: start: 20180223
  8. CATAPRES [Concomitant]
     Active Substance: CLONIDINE HYDROCHLORIDE
     Dosage: 0.1 MILLIGRAM
     Dates: start: 20180711, end: 20191016
  9. POTASSIUM CHLORIDE. [Concomitant]
     Active Substance: POTASSIUM CHLORIDE
     Dosage: 10-20 MILLIEQUIVALENT, QD
     Route: 042
     Dates: start: 20180227
  10. ACYCLOVIR [ACICLOVIR] [Concomitant]
     Active Substance: ACYCLOVIR
     Dosage: 800 MILLIGRAM
     Dates: start: 20180223
  11. LANTUS [Concomitant]
     Active Substance: INSULIN GLARGINE
     Dosage: 20 UNIT, QHS
     Dates: start: 20180808
  12. TYLENOL [Concomitant]
     Active Substance: ACETAMINOPHEN
     Dosage: 325-650 MILLIGRAM
     Route: 048
     Dates: start: 20180912
  13. MONTELUKAST [Concomitant]
     Active Substance: MONTELUKAST SODIUM
     Dosage: 10 MILLIGRAM
     Route: 048
     Dates: start: 20180228
  14. ACETAMINOPHEN. [Concomitant]
     Active Substance: ACETAMINOPHEN
     Indication: PAIN
     Dosage: 650 MILLIGRAM, Q4H AS NEEDED(PRN)
     Route: 048
     Dates: start: 20180228
  15. VITAMIN B12 [Concomitant]
     Active Substance: CYANOCOBALAMIN
     Dosage: 1000 MICROGRAM, QD
  16. LASIX [Concomitant]
     Active Substance: FUROSEMIDE
     Dosage: 26-40 MILLIGRAM
     Dates: start: 20190826
  17. ASPIRIN [ACETYLSALICYLIC ACID] [Concomitant]
     Active Substance: ASPIRIN
     Dosage: 81 MILLIGRAM, QD
     Dates: start: 20160906
  18. GLIPIZIDE. [Concomitant]
     Active Substance: GLIPIZIDE
     Dosage: 10 MILLIGRAM, BID
     Dates: start: 20160823
  19. CARFILZOMIB [Suspect]
     Active Substance: CARFILZOMIB
     Indication: PLASMA CELL MYELOMA
     Dosage: 51 MILLIGRAM, PER CHEMO REGIM
     Route: 042
     Dates: start: 20180228
  20. ALLOPURINOL. [Concomitant]
     Active Substance: ALLOPURINOL
     Dosage: 300 MILLIGRAM, QD
     Dates: start: 20180223
  21. DIPHENHYDRAMINE HCL [Concomitant]
     Active Substance: DIPHENHYDRAMINE HYDROCHLORIDE
     Dosage: 50 MILLIGRAM
     Dates: start: 20180228
  22. SINGULAIR [Concomitant]
     Active Substance: MONTELUKAST SODIUM
     Dosage: 10 MILLIGRAM
     Route: 048
     Dates: start: 20181010
  23. DIPHENHYDRAMINE. [Concomitant]
     Active Substance: DIPHENHYDRAMINE
     Dosage: 50 MILLIGRAM
     Route: 042
     Dates: start: 20190619
  24. HUMALOG [Concomitant]
     Active Substance: INSULIN LISPRO
     Dosage: UNK
  25. CARDIZEM [Concomitant]
     Active Substance: DILTIAZEM HYDROCHLORIDE
     Dosage: 180 MILLIGRAM
     Dates: start: 20180411, end: 20191016
  26. IMDUR [Concomitant]
     Active Substance: ISOSORBIDE MONONITRATE
     Dosage: 60 MILLIGRAM, QD
     Dates: start: 20180321
  27. VITAMIN B12 [Concomitant]
     Active Substance: CYANOCOBALAMIN
     Dosage: 1000-5000 MICROGRAM DAILY
     Dates: start: 20180212
  28. ZOMETA [Concomitant]
     Active Substance: ZOLEDRONIC ACID
     Dosage: 4 MILLIGRAM
     Route: 042
     Dates: start: 20180227
  29. DEXAMETHASONE. [Concomitant]
     Active Substance: DEXAMETHASONE
     Indication: PLASMA CELL MYELOMA
     Dosage: 10-20 MILLIGRAM
     Dates: start: 20190717
  30. SODIUM POLYSTYRENE SULFONATE. [Concomitant]
     Active Substance: SODIUM POLYSTYRENE SULFONATE
     Dosage: 5 GRAM
     Dates: start: 20190417
  31. BENADRYL [Concomitant]
     Active Substance: DIPHENHYDRAMINE HYDROCHLORIDE
     Dosage: 50 MILLIGRAM
     Route: 042
     Dates: start: 20180912
  32. SLOW-K [Concomitant]
     Active Substance: POTASSIUM CHLORIDE
     Indication: BLOOD POTASSIUM DECREASED
     Dosage: UNK
  33. DARATUMUMAB [Suspect]
     Active Substance: DARATUMUMAB
     Indication: PLASMA CELL MYELOMA
     Dosage: 816 MILLIGRAM, PER CHEMO REGIM
     Route: 042
     Dates: start: 20180228
  34. PROCRIT [Concomitant]
     Active Substance: ERYTHROPOIETIN
     Dosage: 40000 INTERNATIONAL UNIT
     Dates: start: 20190918, end: 20191023
  35. KAYEXALATE [Concomitant]
     Active Substance: SODIUM POLYSTYRENE SULFONATE
     Dosage: UNK

REACTIONS (2)
  - Atrial enlargement [Recovered/Resolved]
  - Oedema peripheral [Recovered/Resolved]

NARRATIVE: CASE EVENT DATE: 20191014
